FAERS Safety Report 22323108 (Version 2)
Quarter: 2023Q2

REPORT INFORMATION
  Report Type: Report from Study
  Country: US (occurrence: US)
  Receive Date: 20230516
  Receipt Date: 20230518
  Transmission Date: 20230721
  Serious: No
  Sender: FDA-Public Use
  Company Number: US-002147023-NVSC2023US107156

PATIENT
  Sex: Female
  Weight: 124.28 kg

DRUGS (9)
  1. COSENTYX [Suspect]
     Active Substance: SECUKINUMAB
     Indication: Psoriasis
     Dosage: 300 MG
     Route: 065
  2. METRONIDAZOLE [Suspect]
     Active Substance: METRONIDAZOLE
     Indication: Psoriasis
     Dosage: 0.75 % EXTERNAL GEL
     Route: 065
  3. MOMETASONE FUROATE [Suspect]
     Active Substance: MOMETASONE FUROATE
     Indication: Psoriasis
     Dosage: 0.1 %
     Route: 065
  4. MUPIROCIN [Suspect]
     Active Substance: MUPIROCIN
     Indication: Psoriasis
     Dosage: 2 %
     Route: 065
  5. IBUPROFEN [Suspect]
     Active Substance: IBUPROFEN
     Indication: Psoriasis
     Dosage: 800 MG
     Route: 048
  6. DESONIDE [Suspect]
     Active Substance: DESONIDE
     Indication: Psoriasis
     Dosage: 0.05 %
     Route: 065
  7. FLUOCINONIDE [Suspect]
     Active Substance: FLUOCINONIDE
     Indication: Psoriasis
     Dosage: 0.05 %
     Route: 065
  8. ECONAZOLE NITRATE [Suspect]
     Active Substance: ECONAZOLE NITRATE
     Indication: Psoriasis
     Dosage: 1 %
     Route: 065
  9. VALACYCLOVIR HYDROCHLORIDE [Suspect]
     Active Substance: VALACYCLOVIR HYDROCHLORIDE
     Indication: Psoriasis
     Dosage: 1 G
     Route: 065

REACTIONS (15)
  - Pilonidal disease [Unknown]
  - Oedema [Unknown]
  - Skin erosion [Unknown]
  - Skin plaque [Unknown]
  - Scab [Unknown]
  - Axillary mass [Unknown]
  - Nodule [Unknown]
  - Skin discolouration [Unknown]
  - Hidradenitis [Unknown]
  - Skin irritation [Unknown]
  - Skin lesion [Unknown]
  - Psoriasis [Unknown]
  - Discharge [Unknown]
  - Product use in unapproved indication [Unknown]
  - Drug ineffective [Unknown]
